FAERS Safety Report 6381301-7 (Version None)
Quarter: 2009Q3

REPORT INFORMATION
  Report Type: 
  Country: None (occurrence: None)
  Receive Date: 20090929
  Receipt Date: 20090915
  Transmission Date: 20100115
  Serious: Yes (Other)
  Sender: FDA-Public Use
  Company Number: IT-GENENTECH-290993

PATIENT
  Age: 46 Year
  Sex: Male
  Weight: 60 kg

DRUGS (4)
  1. XOLAIR [Suspect]
     Indication: ASTHMA
     Dosage: 300 MG, UNK
     Dates: start: 20070601
  2. FLUTICASONE PROPIONATE/SALMETEROL XINAFOATE [Concomitant]
     Indication: DRUG USE FOR UNKNOWN INDICATION
  3. INTERFERON ALFA-2A [Concomitant]
     Indication: DRUG USE FOR UNKNOWN INDICATION
     Dosage: UNK
     Dates: start: 20081101
  4. RIBAVIRIN [Concomitant]
     Indication: DRUG USE FOR UNKNOWN INDICATION
     Dosage: UNK
     Dates: start: 20081101

REACTIONS (3)
  - ASTHMA [None]
  - GAMMA-GLUTAMYLTRANSFERASE INCREASED [None]
  - RESPIRATORY TRACT INFECTION VIRAL [None]
